FAERS Safety Report 20249392 (Version 1)
Quarter: 2021Q4

REPORT INFORMATION
  Report Type: Spontaneous
  Country: US (occurrence: None)
  Receive Date: 20211229
  Receipt Date: 20211229
  Transmission Date: 20220304
  Serious: Yes (Other)
  Sender: FDA-Public Use
  Company Number: None

PATIENT
  Age: 52 Year
  Sex: Male

DRUGS (1)
  1. CASIRIVIMAB\IMDEVIMAB [Suspect]
     Active Substance: CASIRIVIMAB\IMDEVIMAB
     Indication: COVID-19

REACTIONS (6)
  - Feeling abnormal [None]
  - Dyspnoea [None]
  - Hyperhidrosis [None]
  - Erythema [None]
  - Emotional distress [None]
  - Drug hypersensitivity [None]

NARRATIVE: CASE EVENT DATE: 20211214
